FAERS Safety Report 20556745 (Version 2)
Quarter: 2022Q1

REPORT INFORMATION
  Report Type: Spontaneous
  Country: IT (occurrence: IT)
  Receive Date: 20220307
  Receipt Date: 20220325
  Transmission Date: 20220423
  Serious: Yes (Death, Hospitalization, Other)
  Sender: FDA-Public Use
  Company Number: IT-OTSUKA-2022_006187

PATIENT
  Age: 65 Year
  Sex: Male

DRUGS (10)
  1. ARIPIPRAZOLE [Suspect]
     Active Substance: ARIPIPRAZOLE
     Indication: Schizoaffective disorder
     Dosage: 15 MILLIGRAM, ONCE A DAY (15 MG, QD (IN THE EVENING))
     Route: 065
     Dates: start: 20210829, end: 20211001
  2. ARIPIPRAZOLE [Suspect]
     Active Substance: ARIPIPRAZOLE
     Dosage: 20 MILLIGRAM
     Route: 048
     Dates: start: 20211001, end: 20211001
  3. ABILIFY MAINTENA [Suspect]
     Active Substance: ARIPIPRAZOLE
     Indication: Schizoaffective disorder
     Dosage: 800 MILLIGRAM(800 MG (400 MG IN DELTOID PLUS 400 MG IN GLUTEUS)
     Route: 065
     Dates: start: 20211001, end: 20211001
  4. ABILIFY MAINTENA [Suspect]
     Active Substance: ARIPIPRAZOLE
     Indication: Akathisia
     Dosage: 200 MILLIGRAM (REPEATED AFTER 14 DAYS)
     Route: 065
     Dates: start: 202110
  5. AKINETON [Suspect]
     Active Substance: BIPERIDEN HYDROCHLORIDE
     Indication: Akathisia
     Dosage: UNK
     Route: 065
     Dates: start: 202110
  6. AKINETON [Suspect]
     Active Substance: BIPERIDEN HYDROCHLORIDE
     Dosage: UNK
     Route: 065
     Dates: start: 20211108
  7. LITHIUM CARBONATE [Suspect]
     Active Substance: LITHIUM CARBONATE
     Indication: Product used for unknown indication
     Dosage: 600 MILLIGRAM (300 MG X 2 (IN THE EVENING)
     Route: 065
  8. VALPROATE SODIUM [Suspect]
     Active Substance: VALPROATE SODIUM
     Indication: Product used for unknown indication
     Dosage: 1 DOSAGE FORM, ONCE A DAY ( UNK UNK, QD (IN THE EVENING))
     Route: 065
  9. FLURAZEPAM HYDROCHLORIDE [Suspect]
     Active Substance: FLURAZEPAM HYDROCHLORIDE
     Indication: Product used for unknown indication
     Dosage: UNK
     Route: 065
     Dates: start: 20211112
  10. ADEMETIONINE [Suspect]
     Active Substance: ADEMETIONINE
     Indication: Depression
     Dosage: 400 MG (FOR 12 DAYS)
     Route: 065
     Dates: start: 202110

REACTIONS (8)
  - Death [Fatal]
  - Depression [Unknown]
  - Akathisia [Unknown]
  - Product use in unapproved indication [Unknown]
  - Inappropriate schedule of product administration [Unknown]
  - Urinary tract infection [Unknown]
  - Insomnia [Unknown]
  - Pyrexia [Unknown]

NARRATIVE: CASE EVENT DATE: 20211001
